FAERS Safety Report 13962166 (Version 2)
Quarter: 2018Q3

REPORT INFORMATION
  Report Type: Spontaneous
  Country: NO (occurrence: NO)
  Receive Date: 20170912
  Receipt Date: 20180815
  Transmission Date: 20181010
  Serious: Yes (Other)
  Sender: FDA-Public Use
  Company Number: NO-BAUSCH-BL-2017-026635

PATIENT
  Age: 25 Year
  Sex: Female

DRUGS (6)
  1. CYTARABINE. [Suspect]
     Active Substance: CYTARABINE
     Indication: LEUKOCYTOSIS
     Dosage: 2 DF, WEEKLY; INITIALLY UNTIL SPINAL FLUID WAS BLANK
     Route: 037
     Dates: start: 20160628, end: 201609
  2. METHOTREXATE MEDAC [Suspect]
     Active Substance: METHOTREXATE SODIUM
     Indication: LEUKOCYTOSIS
     Dosage: 1 DF, WEEKLY
     Route: 037
     Dates: start: 20160919, end: 20161115
  3. PREDNISOLONE. [Suspect]
     Active Substance: PREDNISOLONE
     Indication: ACUTE LYMPHOCYTIC LEUKAEMIA
     Dosage: 2 DF, WEEKLY; INITIALLY UNTIL SPINAL FLUID WAS BLANK
     Route: 037
     Dates: start: 20160628, end: 201609
  4. PREDNISOLONE. [Suspect]
     Active Substance: PREDNISOLONE
     Indication: LEUKOCYTOSIS
     Dosage: 1 DF, WEEKLY
     Route: 037
     Dates: start: 20160919, end: 20161115
  5. CYTARABINE. [Suspect]
     Active Substance: CYTARABINE
     Indication: ACUTE LYMPHOCYTIC LEUKAEMIA
     Dosage: 1 DF, WEEKLY
     Route: 037
     Dates: start: 20160919, end: 20161115
  6. METHOTREXATE MEDAC [Suspect]
     Active Substance: METHOTREXATE SODIUM
     Indication: ACUTE LYMPHOCYTIC LEUKAEMIA
     Dosage: 2 DF, WEEKLY; INITIALLY UNTIL SPINAL FLUID WAS BLANK
     Route: 037
     Dates: start: 20160628, end: 20160918

REACTIONS (1)
  - Myelopathy [Unknown]
